FAERS Safety Report 9115521 (Version 3)
Quarter: 2013Q4

REPORT INFORMATION
  Report Type: Report from Study
  Country: BR (occurrence: BR)
  Receive Date: 20130225
  Receipt Date: 20131009
  Transmission Date: 20140711
  Serious: Yes (Hospitalization)
  Sender: FDA-Public Use
  Company Number: BR-US-EMD SERONO, INC.-7194719

PATIENT
  Sex: Female

DRUGS (2)
  1. REBIF [Suspect]
     Indication: MULTIPLE SCLEROSIS
     Dates: start: 20121129, end: 20130228
  2. REBIF [Suspect]
     Dates: start: 20130228

REACTIONS (2)
  - Vision blurred [Recovered/Resolved]
  - Hypoaesthesia [Unknown]
